FAERS Safety Report 9203864 (Version 1)
Quarter: 2013Q2

REPORT INFORMATION
  Report Type: Spontaneous
  Country: US (occurrence: US)
  Receive Date: 20130402
  Receipt Date: 20130402
  Transmission Date: 20140414
  Serious: Yes (Other)
  Sender: FDA-Public Use
  Company Number: US-PFIZER INC-2013101296

PATIENT
  Age: 21 Year
  Sex: Male
  Weight: 77.1 kg

DRUGS (11)
  1. EFFEXOR [Suspect]
     Indication: DEPRESSION
     Dosage: UNK, 1X/DAY
  2. ZOLOFT [Suspect]
     Indication: DEPRESSION
     Dosage: 300 MG, 1X/DAY
     Route: 048
  3. GEODON [Suspect]
     Dosage: UNK, 1X/DAY
  4. CELEXA [Suspect]
     Indication: DEPRESSION
     Dosage: UNK, 1X/DAY
  5. WELLBUTRIN [Suspect]
     Indication: DEPRESSION
     Dosage: UNK, 1X/DAY
  6. KLONOPIN [Concomitant]
     Dosage: UNK
  7. PROZAC [Concomitant]
     Indication: DEPRESSION
     Dosage: UNK, 1X/DAY
  8. CYMBALTA [Concomitant]
     Indication: DEPRESSION
     Dosage: UNK, 1X/DAY
  9. PAXIL [Concomitant]
     Indication: DEPRESSION
     Dosage: UNK, 1X/DAY
  10. ZYPREXA [Concomitant]
     Dosage: UNK, 1X/DAY
  11. ABILIFY [Concomitant]
     Dosage: UNK, 1X/DAY

REACTIONS (5)
  - Akinesia [Recovered/Resolved]
  - Platelet count increased [Unknown]
  - Platelet count decreased [Unknown]
  - Paradoxical drug reaction [Recovered/Resolved]
  - Drug ineffective [Unknown]
